FAERS Safety Report 18484329 (Version 1)
Quarter: 2020Q4

REPORT INFORMATION
  Report Type: Report from Study
  Country: US (occurrence: US)
  Receive Date: 20201110
  Receipt Date: 20201110
  Transmission Date: 20210114
  Serious: Yes (Death)
  Sender: FDA-Public Use
  Company Number: US-ASTRAZENECA-2020SF46171

PATIENT
  Sex: Female

DRUGS (6)
  1. COLCHICINE. [Concomitant]
     Active Substance: COLCHICINE
     Dosage: 0.6. UNKNOWN
  2. ISOSORCIDE BINITRATE [Concomitant]
     Dosage: 5.0MG UNKNOWN
  3. TEMAZEPARM [Concomitant]
     Dosage: 15.0MG UNKNOWN
  4. METROPOLOL [Suspect]
     Active Substance: METOPROLOL
     Dosage: 25.0MG UNKNOWN
     Route: 065
  5. BRILINTA [Suspect]
     Active Substance: TICAGRELOR
     Dosage: 90.0MG UNKNOWN
     Route: 048
  6. ATORVASTATIN [Concomitant]
     Active Substance: ATORVASTATIN
     Dosage: 80.0MG UNKNOWN

REACTIONS (1)
  - Death [Fatal]
